FAERS Safety Report 6495984-4 (Version None)
Quarter: 2009Q4

REPORT INFORMATION
  Report Type: 
  Country: None (occurrence: None)
  Receive Date: 20091214
  Receipt Date: 20090910
  Transmission Date: 20100525
  Serious: No
  Sender: FDA-Public Use
  Company Number: US-BRISTOL-MYERS SQUIBB COMPANY-14774590

PATIENT
  Age: 66 Year
  Sex: Female

DRUGS (5)
  1. ABILIFY [Suspect]
     Indication: DEMENTIA
     Dates: start: 20081001
  2. ABILIFY [Suspect]
     Indication: ABNORMAL BEHAVIOUR
     Dates: start: 20081001
  3. ABILIFY [Suspect]
     Indication: MENTAL IMPAIRMENT
     Dates: start: 20081001
  4. ABILIFY [Suspect]
     Indication: MENTAL DISORDER
     Dates: start: 20081001
  5. ABILIFY [Suspect]
     Indication: MAJOR DEPRESSION
     Dates: start: 20081001

REACTIONS (1)
  - TORTICOLLIS [None]
